FAERS Safety Report 8208588-X (Version None)
Quarter: 2012Q1

REPORT INFORMATION
  Report Type: 
  Country: None (occurrence: None)
  Receive Date: 20120314
  Receipt Date: 20120309
  Transmission Date: 20120608
  Serious: Yes (Other)
  Sender: FDA-Public Use
  Company Number: JP-GLAXOSMITHKLINE-B0779832A

PATIENT
  Sex: Female

DRUGS (7)
  1. PROTHIADEN [Concomitant]
     Dosage: 100MG PER DAY
     Route: 048
  2. PROTHIADEN [Concomitant]
     Dosage: 150MG PER DAY
     Route: 048
  3. LEVOTHYROXINE SODIUM [Concomitant]
     Dosage: 100MCG PER DAY
     Route: 048
     Dates: start: 20040401
  4. PROTHIADEN [Concomitant]
     Dosage: 50MG PER DAY
     Route: 048
     Dates: start: 20070301
  5. LAMICTAL [Suspect]
     Indication: BIPOLAR DISORDER
     Dosage: 25MG PER DAY
     Route: 048
     Dates: start: 20120112, end: 20120125
  6. LAMICTAL [Suspect]
     Dosage: 50MG PER DAY
     Route: 048
     Dates: start: 20120126, end: 20120128
  7. LAC B [Concomitant]
     Dosage: 3G PER DAY
     Route: 048

REACTIONS (23)
  - ORAL PAIN [None]
  - LIVER DISORDER [None]
  - APHTHOUS STOMATITIS [None]
  - CHILLS [None]
  - CHAPPED LIPS [None]
  - OROPHARYNGEAL PAIN [None]
  - PAPULE [None]
  - ASPARTATE AMINOTRANSFERASE INCREASED [None]
  - RASH GENERALISED [None]
  - WHITE BLOOD CELL COUNT DECREASED [None]
  - PRURITUS GENERALISED [None]
  - PARAESTHESIA ORAL [None]
  - LIP PAIN [None]
  - DYSPHONIA [None]
  - ALANINE AMINOTRANSFERASE INCREASED [None]
  - PYREXIA [None]
  - HEADACHE [None]
  - DIZZINESS [None]
  - LIP SWELLING [None]
  - DYSPHAGIA [None]
  - GLOSSODYNIA [None]
  - STOMATITIS [None]
  - MONOCYTE PERCENTAGE INCREASED [None]
